FAERS Safety Report 14528098 (Version 4)
Quarter: 2018Q3

REPORT INFORMATION
  Report Type: Spontaneous
  Country: AT (occurrence: AT)
  Receive Date: 20180213
  Receipt Date: 20180822
  Transmission Date: 20181010
  Serious: Yes (Other)
  Sender: FDA-Public Use
  Company Number: AT-ROCHE-1747435

PATIENT
  Age: 73 Year
  Sex: Female

DRUGS (2)
  1. ZELBORAF [Suspect]
     Active Substance: VEMURAFENIB
     Indication: METASTATIC MALIGNANT MELANOMA
     Dosage: THERAPY WITH VEMURAFENIB WAS PAUSED BETWEEN 20/AUG/2013 AND 20/SEP/2013
     Route: 065
     Dates: start: 20130402
  2. ZELBORAF [Suspect]
     Active Substance: VEMURAFENIB
     Route: 065

REACTIONS (2)
  - Iridocyclitis [Unknown]
  - Photosensitivity reaction [Unknown]
